FAERS Safety Report 16366060 (Version 1)
Quarter: 2019Q2

REPORT INFORMATION
  Report Type: Report from Study
  Country: ES (occurrence: ES)
  Receive Date: 20190529
  Receipt Date: 20190529
  Transmission Date: 20190711
  Serious: Yes (Other)
  Sender: FDA-Public Use
  Company Number: ES-JNJFOC-20190527063

PATIENT

DRUGS (2)
  1. IBRUTINIB [Suspect]
     Active Substance: IBRUTINIB
     Indication: LYMPHOCYTIC LYMPHOMA
     Route: 048
  2. IBRUTINIB [Suspect]
     Active Substance: IBRUTINIB
     Indication: CHRONIC LYMPHOCYTIC LEUKAEMIA
     Route: 048

REACTIONS (14)
  - Atrial fibrillation [Unknown]
  - Haemorrhage [Unknown]
  - Asthenia [Unknown]
  - Arthralgia [Unknown]
  - Palpitations [Unknown]
  - Autoimmune haemolytic anaemia [Unknown]
  - Oral herpes [Unknown]
  - Pneumonia [Unknown]
  - Rash [Unknown]
  - Dizziness [Unknown]
  - Neutropenia [Unknown]
  - Muscle spasms [Unknown]
  - Hypertension [Unknown]
  - Infection [Unknown]
